FAERS Safety Report 5853535-9 (Version None)
Quarter: 2008Q3

REPORT INFORMATION
  Report Type: 
  Country: None (occurrence: None)
  Receive Date: 20080822
  Receipt Date: 20080812
  Transmission Date: 20090109
  Serious: Yes (Hospitalization)
  Sender: FDA-Public Use
  Company Number: US-JNJFOC-20080803184

PATIENT
  Sex: Male
  Weight: 88.91 kg

DRUGS (6)
  1. FENTANYL TRANSDERMAL SYSTEM [Suspect]
     Dosage: 100 AND 75 UG/HR
     Route: 062
  2. FENTANYL TRANSDERMAL SYSTEM [Suspect]
     Route: 062
  3. FENTANYL TRANSDERMAL SYSTEM [Suspect]
     Indication: BACK PAIN
     Dosage: 100 AND 75 UG/HR
     Route: 062
  4. PROTONIX [Concomitant]
     Indication: GASTRIC DISORDER
     Route: 048
  5. ATIVAN [Concomitant]
     Indication: STRESS
     Route: 048
  6. DILAUDID [Concomitant]
     Indication: PAIN
     Dosage: 2-6 HOURS AS NEEDED
     Route: 048

REACTIONS (12)
  - BURN OF INTERNAL ORGANS [None]
  - DEHYDRATION [None]
  - DIARRHOEA [None]
  - DRUG ADMINISTERED AT INAPPROPRIATE SITE [None]
  - HAEMORRHAGE [None]
  - INAPPROPRIATE SCHEDULE OF DRUG ADMINISTRATION [None]
  - LOSS OF CONSCIOUSNESS [None]
  - MEMORY IMPAIRMENT [None]
  - MENISCUS LESION [None]
  - MULTI-ORGAN FAILURE [None]
  - VOMITING [None]
  - WRONG TECHNIQUE IN DRUG USAGE PROCESS [None]
